FAERS Safety Report 14124196 (Version 1)
Quarter: 2017Q4

REPORT INFORMATION
  Report Type: Spontaneous
  Country: BR (occurrence: BR)
  Receive Date: 20171025
  Receipt Date: 20171025
  Transmission Date: 20180321
  Serious: Yes (Other)
  Sender: FDA-Public Use
  Company Number: BR-TORRENT-00004202

PATIENT
  Age: 71 Year
  Sex: Female
  Weight: 70 kg

DRUGS (6)
  1. COMBIRON [Concomitant]
     Active Substance: ASCORBIC ACID\FERROUS SULFATE\FOLIC ACID\PYRIDOXINE HYDROCHLORIDE\RIBOFLAVIN\THIAMINE MONONITRATE
  2. CALCITRANS [Concomitant]
     Active Substance: CALCIUM GLUCONATE
  3. METFORMIN [Concomitant]
     Active Substance: METFORMIN HYDROCHLORIDE
  4. LOSARTAN POTASSIUM. [Suspect]
     Active Substance: LOSARTAN POTASSIUM
  5. TORVAL CR 500 MG [Suspect]
     Active Substance: VALPROATE SODIUM
  6. NIMOVAS [Concomitant]

REACTIONS (6)
  - Mobility decreased [Not Recovered/Not Resolved]
  - Somnolence [Not Recovered/Not Resolved]
  - Diarrhoea [Not Recovered/Not Resolved]
  - Confusional state [Not Recovered/Not Resolved]
  - Hypotension [Unknown]
  - Muscular weakness [Not Recovered/Not Resolved]

NARRATIVE: CASE EVENT DATE: 201710
